FAERS Safety Report 24528947 (Version 2)
Quarter: 2024Q4

REPORT INFORMATION
  Report Type: Spontaneous
  Country: DE (occurrence: DE)
  Receive Date: 20241021
  Receipt Date: 20241223
  Transmission Date: 20250115
  Serious: Yes (Hospitalization, Other)
  Sender: PFIZER
  Company Number: DE-AstraZeneca-CH-00721708AM

PATIENT
  Age: 72 Year
  Sex: Female
  Weight: 90 kg

DRUGS (11)
  1. PALBOCICLIB [Suspect]
     Active Substance: PALBOCICLIB
     Dosage: 75 MILLIGRAM, QD
     Route: 048
     Dates: start: 201701
  2. FASLODEX [Suspect]
     Active Substance: FULVESTRANT
     Dosage: UNK
     Route: 030
     Dates: start: 20241007
  3. FASLODEX [Suspect]
     Active Substance: FULVESTRANT
     Dosage: UNK
     Dates: start: 201606
  4. FASLODEX [Suspect]
     Active Substance: FULVESTRANT
     Dosage: UNK
     Dates: start: 201606
  5. FASLODEX [Suspect]
     Active Substance: FULVESTRANT
     Dosage: UNK, IN COMBINATION
     Dates: start: 201701
  6. FASLODEX [Suspect]
     Active Substance: FULVESTRANT
     Dosage: 250 MILLIGRAM, QMONTH
     Route: 030
     Dates: start: 20240917
  7. RAMIPRIL [Suspect]
     Active Substance: RAMIPRIL
     Dosage: 5 MG
  8. RAMIPRIL [Suspect]
     Active Substance: RAMIPRIL
     Dosage: 5 MG, QD
  9. RAMIPRIL [Suspect]
     Active Substance: RAMIPRIL
     Dosage: 5 MG, QD
  10. RAMIPRIL [Suspect]
     Active Substance: RAMIPRIL
     Dosage: 5 MG, QD
  11. RAMIPRIL [Suspect]
     Active Substance: RAMIPRIL
     Dosage: 5 MG, QD

REACTIONS (6)
  - Skin necrosis [Recovered/Resolved]
  - Inflammation [Recovered/Resolved]
  - Rash erythematous [Recovering/Resolving]
  - Musculoskeletal pain [Not Recovered/Not Resolved]
  - Pain in extremity [Not Recovered/Not Resolved]
  - Muscle tightness [Unknown]

NARRATIVE: CASE EVENT DATE: 20241001
